FAERS Safety Report 11139752 (Version 1)
Quarter: 2015Q2

REPORT INFORMATION
  Report Type: Spontaneous
  Country: US (occurrence: None)
  Receive Date: 20150526
  Receipt Date: 20150526
  Transmission Date: 20150821
  Serious: No
  Sender: FDA-Public Use
  Company Number: None

PATIENT
  Age: 62 Year
  Sex: Male

DRUGS (1)
  1. SUTENT [Suspect]
     Active Substance: SUNITINIB MALATE
     Indication: RENAL CANCER
     Dosage: 25 MG CAPS 1 QD 4 WKS ON/2 OFF BY MOUTH
     Route: 048
     Dates: start: 20150204, end: 20150518

REACTIONS (1)
  - Neoplasm progression [None]

NARRATIVE: CASE EVENT DATE: 20150518
